FAERS Safety Report 24016970 (Version 1)
Quarter: 2024Q2

REPORT INFORMATION
  Report Type: Spontaneous
  Country: US (occurrence: US)
  Receive Date: 20240626
  Receipt Date: 20240626
  Transmission Date: 20240716
  Serious: Yes (Hospitalization, Other)
  Sender: FDA-Public Use
  Company Number: US-SLATERUN-2024SRLIT00099

PATIENT
  Age: 15 Year
  Sex: Male

DRUGS (1)
  1. IBUPROFEN [Suspect]
     Active Substance: IBUPROFEN
     Indication: Product used for unknown indication
     Dosage: 80 GM (GREATER THAN 1000MG/KG)
     Route: 048

REACTIONS (4)
  - Shock [Unknown]
  - Metabolic acidosis [Recovered/Resolved]
  - Oxygen consumption decreased [Recovered/Resolved]
  - Overdose [Unknown]
